FAERS Safety Report 9910010 (Version 1)
Quarter: 2014Q1

REPORT INFORMATION
  Report Type: Spontaneous
  Country: US (occurrence: US)
  Receive Date: 20140219
  Receipt Date: 20140219
  Transmission Date: 20141002
  Serious: No
  Sender: FDA-Public Use
  Company Number: US-009507513-1402USA008822

PATIENT
  Sex: Male

DRUGS (2)
  1. JANUMET [Suspect]
     Indication: DIABETES MELLITUS
     Dosage: 2 DF, AT THE SAME TIME.
     Route: 048
  2. JANUMET [Suspect]
     Dosage: 1 DF, UNK
     Route: 048

REACTIONS (1)
  - Vomiting [Recovered/Resolved]
